FAERS Safety Report 18944973 (Version 1)
Quarter: 2021Q1

REPORT INFORMATION
  Report Type: Spontaneous
  Country: US (occurrence: US)
  Receive Date: 20210226
  Receipt Date: 20210226
  Transmission Date: 20210420
  Serious: Yes (Other)
  Sender: FDA-Public Use
  Company Number: None

PATIENT
  Age: 55 Year
  Sex: Female
  Weight: 77.4 kg

DRUGS (16)
  1. ASHWAGNANDHA [Concomitant]
  2. VENLAFAXINE [Concomitant]
     Active Substance: VENLAFAXINE HYDROCHLORIDE
  3. SINGULAIR [Concomitant]
     Active Substance: MONTELUKAST SODIUM
  4. MONTELUKAST [Concomitant]
     Active Substance: MONTELUKAST SODIUM
  5. GREEN TEA OIL [Concomitant]
  6. L?LYSINE [Concomitant]
     Active Substance: LYSINE
  7. ATIVAN [Concomitant]
     Active Substance: LORAZEPAM
  8. ARMOUR THYROID [Concomitant]
     Active Substance: THYROID, PORCINE
  9. IBRANCE [Suspect]
     Active Substance: PALBOCICLIB
     Indication: BREAST CANCER
     Route: 048
     Dates: start: 20201008
  10. MULTIVITAMIN [Concomitant]
     Active Substance: VITAMINS
  11. FLUTICASONE. [Concomitant]
     Active Substance: FLUTICASONE
  12. TAMOXIFEN [Concomitant]
     Active Substance: TAMOXIFEN
  13. OMEGA [Concomitant]
  14. PROBIOTIC [Concomitant]
     Active Substance: PROBIOTICS NOS
  15. TRAMADOL. [Concomitant]
     Active Substance: TRAMADOL
  16. HERBAL EXPEC [Concomitant]

REACTIONS (4)
  - Fatigue [None]
  - Faeces hard [None]
  - Alopecia [None]
  - Dry skin [None]

NARRATIVE: CASE EVENT DATE: 20210226
